FAERS Safety Report 15695095 (Version 1)
Quarter: 2018Q4

REPORT INFORMATION
  Report Type: Spontaneous
  Country: US (occurrence: US)
  Receive Date: 20181206
  Receipt Date: 20181206
  Transmission Date: 20190205
  Serious: No
  Sender: FDA-Public Use
  Company Number: US-NOVOPROD-625041

PATIENT
  Sex: Male

DRUGS (2)
  1. XULTOPHY 100/3.6 [Suspect]
     Active Substance: INSULIN DEGLUDEC\LIRAGLUTIDE
     Dosage: 18 U, UNK
     Route: 058
     Dates: start: 20180929
  2. XULTOPHY 100/3.6 [Suspect]
     Active Substance: INSULIN DEGLUDEC\LIRAGLUTIDE
     Indication: PRODUCT USED FOR UNKNOWN INDICATION
     Dosage: 16 U, UNK
     Route: 058
     Dates: start: 201809, end: 20180928

REACTIONS (4)
  - Nausea [Unknown]
  - Discomfort [Unknown]
  - Decreased appetite [Unknown]
  - Blood glucose increased [Unknown]

NARRATIVE: CASE EVENT DATE: 201809
